FAERS Safety Report 9516880 (Version 1)
Quarter: 2013Q1

REPORT INFORMATION
  Report Type: Spontaneous
  Country: US (occurrence: None)
  Receive Date: 20130305
  Receipt Date: 20130305
  Transmission Date: 20140127
  Serious: Yes (Hospitalization)
  Sender: FDA-Public Use
  Company Number: 163-21880-12081109

PATIENT
  Age: 72 Year
  Sex: Female

DRUGS (4)
  1. REVLIMID (LENALIDOMIDE) (25 MILLIGRAM, CAPSULES) [Suspect]
     Indication: PLASMA CELL MYELOMA
     Route: 048
     Dates: start: 20120605
  2. PREDNISOLONE ACETATE (PREDNISOLONE ACETATE) [Concomitant]
  3. KETOROLAC TROMETHAMINE (KETOROLAC TRTOMETHAMINE) [Concomitant]
  4. NYSTATIN (NYSTATIN) [Concomitant]

REACTIONS (3)
  - Gastroenteritis viral [None]
  - Vomiting [None]
  - Diarrhoea [None]
